FAERS Safety Report 15727986 (Version 3)
Quarter: 2019Q1

REPORT INFORMATION
  Report Type: Spontaneous
  Country: US (occurrence: US)
  Receive Date: 20181217
  Receipt Date: 20190312
  Transmission Date: 20190417
  Serious: Yes (Other)
  Sender: FDA-Public Use
  Company Number: US-SUN PHARMACEUTICAL INDUSTRIES LTD-2018R1-193740

PATIENT
  Sex: Female

DRUGS (3)
  1. PROPRANOLOL [Concomitant]
     Active Substance: PROPRANOLOL HYDROCHLORIDE
     Indication: HEADACHE
     Dosage: UNK
     Route: 065
  2. VYVANSE [Concomitant]
     Active Substance: LISDEXAMFETAMINE DIMESYLATE
     Indication: ATTENTION DEFICIT/HYPERACTIVITY DISORDER
     Dosage: UNK
     Route: 065
  3. DESVENLAFAXINE. [Suspect]
     Active Substance: DESVENLAFAXINE
     Indication: DEPRESSION
     Dosage: 1 DOSAGE FORM, DAILY
     Route: 065

REACTIONS (5)
  - Suicidal ideation [Recovered/Resolved]
  - Drug ineffective [Unknown]
  - Feeling abnormal [Recovered/Resolved]
  - Loss of employment [Recovered/Resolved]
  - Psychomotor hyperactivity [Recovered/Resolved]
